FAERS Safety Report 6121187-9 (Version None)
Quarter: 2009Q1

REPORT INFORMATION
  Report Type: 
  Country: None (occurrence: None)
  Receive Date: 20090312
  Receipt Date: 20090312
  Transmission Date: 20090719
  Serious: Yes (Hospitalization)
  Sender: FDA-Public Use
  Company Number: None

PATIENT
  Age: 15 Year
  Sex: Male
  Weight: 11 kg

DRUGS (1)
  1. OXCARBAZEPINE [Suspect]
     Indication: EPILEPSY
     Dosage: 900MG Q 12 HOURS PO
     Route: 048

REACTIONS (2)
  - CONVULSION [None]
  - THERAPEUTIC RESPONSE UNEXPECTED WITH DRUG SUBSTITUTION [None]
